FAERS Safety Report 6288966-9 (Version None)
Quarter: 2009Q3

REPORT INFORMATION
  Report Type: 
  Country: None (occurrence: None)
  Receive Date: 20090729
  Receipt Date: 20090715
  Transmission Date: 20100115
  Serious: Yes (Hospitalization)
  Sender: FDA-Public Use
  Company Number: DE-WYE-H10255509

PATIENT
  Age: 90 Year
  Sex: Male

DRUGS (6)
  1. PANTOZOL [Suspect]
     Indication: PROPHYLAXIS AGAINST GASTROINTESTINAL ULCER
     Route: 048
     Dates: start: 20090424, end: 20090426
  2. ACETYLSALICYLIC ACID [Concomitant]
     Indication: CORONARY ARTERY DISEASE
     Route: 048
     Dates: start: 20050101, end: 20090424
  3. ALNA [Concomitant]
     Indication: BENIGN PROSTATIC HYPERPLASIA
     Route: 048
     Dates: start: 20060101, end: 20090424
  4. ISMN [Concomitant]
     Indication: CORONARY ARTERY DISEASE
     Route: 048
     Dates: start: 20060101
  5. IMBUN [Suspect]
     Indication: ANALGESIC THERAPY
     Route: 048
     Dates: start: 20090424, end: 20090426
  6. NOVALGIN [Suspect]
     Route: 048
     Dates: start: 20090424, end: 20090426

REACTIONS (1)
  - RENAL FAILURE ACUTE [None]
